FAERS Safety Report 14085128 (Version 1)
Quarter: 2017Q4

REPORT INFORMATION
  Report Type: Report from Study
  Country: US (occurrence: US)
  Receive Date: 20171013
  Receipt Date: 20171013
  Transmission Date: 20180321
  Serious: No
  Sender: FDA-Public Use
  Company Number: US-AMGEN-USASL2017155084

PATIENT
  Age: 64 Year
  Sex: Female

DRUGS (1)
  1. ENBREL [Suspect]
     Active Substance: ETANERCEPT
     Indication: RHEUMATOID ARTHRITIS
     Dosage: UNK
     Route: 065
     Dates: start: 201707

REACTIONS (6)
  - Oropharyngeal pain [Unknown]
  - Throat irritation [Unknown]
  - Dry mouth [Unknown]
  - Bronchitis [Unknown]
  - Sinusitis [Unknown]
  - Bladder disorder [Unknown]

NARRATIVE: CASE EVENT DATE: 2017
